FAERS Safety Report 7626157-7 (Version None)
Quarter: 2011Q3

REPORT INFORMATION
  Report Type: 
  Country: None (occurrence: None)
  Receive Date: 20110721
  Receipt Date: 20110715
  Transmission Date: 20111222
  Serious: Yes (Death, Other)
  Sender: FDA-Public Use
  Company Number: US-CELGENEUS-163-21880-11060967

PATIENT

DRUGS (8)
  1. DEXAMETHASONE [Suspect]
     Indication: MULTIPLE MYELOMA
     Dosage: 40 MILLIGRAM
     Route: 051
  2. REVLIMID [Suspect]
  3. DOXORUBICIN HCL [Suspect]
     Indication: MULTIPLE MYELOMA
     Dosage: 4 MILLIGRAM/SQ. METER
     Route: 051
  4. BORTEZOMIB [Suspect]
     Indication: MULTIPLE MYELOMA
     Dosage: 1 MILLIGRAM/SQ. METER
     Route: 051
  5. DOXORUBICIN HCL [Suspect]
  6. DEXAMETHASONE [Suspect]
  7. REVLIMID [Suspect]
     Indication: MULTIPLE MYELOMA
     Dosage: 10 MILLIGRAM
     Route: 048
  8. BORTEZOMIB [Suspect]

REACTIONS (15)
  - NEUTROPENIA [None]
  - ANAEMIA [None]
  - FALL [None]
  - DEATH [None]
  - PNEUMONIA [None]
  - CONFUSIONAL STATE [None]
  - HYPOPHOSPHATAEMIA [None]
  - RESPIRATORY DISTRESS [None]
  - DYSPHAGIA [None]
  - THROMBOCYTOPENIA [None]
  - SYNCOPE [None]
  - MULTIPLE MYELOMA [None]
  - BASAL CELL CARCINOMA [None]
  - NEUROPATHY PERIPHERAL [None]
  - DYSPNOEA [None]
